FAERS Safety Report 8781565 (Version 1)
Quarter: 2012Q4

REPORT INFORMATION
  Report Type: 
  Country: SE (occurrence: SE)
  Receive Date: 20120913
  Receipt Date: 20120913
  Transmission Date: 20130627
  Serious: Yes (Hospitalization)
  Sender: FDA-Public Use
  Company Number: SE-PFIZER INC-2012221104

PATIENT
  Sex: Male
  Weight: 82 kg

DRUGS (11)
  1. GENOTROPIN [Suspect]
     Dosage: 0.8 mg, 1x/day, 7injections/week
     Route: 058
     Dates: start: 20060101, end: 20070214
  2. CORTONE [Concomitant]
     Indication: BLOOD CORTICOTROPHIN DECREASED
     Dosage: UNK
     Dates: start: 19750115
  3. SELOKEN ZOC [Concomitant]
     Indication: HYPERTENSION
     Dosage: UNK
     Dates: start: 20031106
  4. NORVASC [Concomitant]
     Indication: HYPERTENSION
     Dosage: UNK
     Dates: start: 19950115
  5. SPIRONOLACTONE [Concomitant]
     Indication: DIURETIC THERAPY
     Dosage: UNK
     Dates: start: 20051015
  6. LEVAXIN [Concomitant]
     Indication: BLOOD THYROID STIMULATING HORMONE DECREASED
     Dosage: UNK
     Dates: start: 19650115
  7. LEVAXIN [Concomitant]
     Indication: PRIMARY HYPOTHYROIDISM
  8. LASIX RETARD [Concomitant]
     Indication: OEDEMA
     Dosage: UNK
     Dates: start: 20001220
  9. TESTOGEL [Concomitant]
     Indication: BLOOD LUTEINISING HORMONE DECREASED
     Dosage: UNK
     Dates: start: 20060216
  10. TESTOGEL [Concomitant]
     Indication: BLOOD FOLLICLE STIMULATING HORMONE DECREASED
  11. TESTOGEL [Concomitant]
     Indication: HYPOGONADISM MALE

REACTIONS (1)
  - Nasal disorder [Unknown]
